FAERS Safety Report 4810997-3 (Version None)
Quarter: 2005Q4

REPORT INFORMATION
  Report Type: 
  Country: None (occurrence: None)
  Receive Date: 20051025
  Receipt Date: 20051011
  Transmission Date: 20060501
  Serious: Yes (Other)
  Sender: FDA-Public Use
  Company Number: 005829

PATIENT
  Sex: Female

DRUGS (1)
  1. FLUOXETINE [Suspect]
     Dosage: ORAL
     Route: 048

REACTIONS (13)
  - ANXIETY [None]
  - CARDIAC FAILURE [None]
  - CONFUSIONAL STATE [None]
  - DIFFICULTY IN WALKING [None]
  - DIZZINESS [None]
  - DYSPNOEA [None]
  - FEELING ABNORMAL [None]
  - FLUID RETENTION [None]
  - GENERAL SYMPTOM [None]
  - HEART RATE IRREGULAR [None]
  - JOINT SWELLING [None]
  - OEDEMA PERIPHERAL [None]
  - RENAL PAIN [None]
